FAERS Safety Report 6892619-3 (Version None)
Quarter: 2010Q3

REPORT INFORMATION
  Report Type: 
  Country: None (occurrence: None)
  Receive Date: 20100731
  Receipt Date: 20080729
  Transmission Date: 20110219
  Serious: No
  Sender: FDA-Public Use
  Company Number: US-PFIZER INC-2008015113

PATIENT
  Sex: Female
  Weight: 64.5 kg

DRUGS (1)
  1. GABAPENTIN [Suspect]
     Indication: FACIAL NEURALGIA

REACTIONS (3)
  - ABDOMINAL DISCOMFORT [None]
  - HEADACHE [None]
  - PRODUCT QUALITY ISSUE [None]
